FAERS Safety Report 8830542 (Version 2)
Quarter: 2012Q4

REPORT INFORMATION
  Report Type: 
  Country: JP (occurrence: JP)
  Receive Date: 20121009
  Receipt Date: 20121122
  Transmission Date: 20130627
  Serious: Yes (Death, Other)
  Sender: FDA-Public Use
  Company Number: JP-JNJFOC-20121004909

PATIENT
  Age: 74 Year
  Sex: Male
  Weight: 52 kg

DRUGS (6)
  1. XARELTO [Suspect]
     Indication: THROMBOSIS PROPHYLAXIS
     Route: 048
     Dates: start: 20120912, end: 20120914
  2. XARELTO [Suspect]
     Indication: THROMBOSIS PROPHYLAXIS
     Route: 048
     Dates: start: 20120922, end: 20120926
  3. UNFRACTIONATED HEPARIN [Concomitant]
     Route: 065
     Dates: start: 20120906, end: 20120911
  4. LEVOTHYROXINE SODIUM [Concomitant]
     Route: 048
     Dates: start: 20120906
  5. CRESTOR [Concomitant]
     Route: 048
     Dates: start: 20120906
  6. RADICUT [Concomitant]
     Route: 041
     Dates: start: 20120906, end: 20120919

REACTIONS (3)
  - Cerebral artery embolism [Fatal]
  - Haemorrhagic infarction [Unknown]
  - Drug ineffective [Unknown]
